FAERS Safety Report 7132246-6 (Version None)
Quarter: 2010Q4

REPORT INFORMATION
  Report Type: 
  Country: None (occurrence: None)
  Receive Date: 20101202
  Receipt Date: 20101118
  Transmission Date: 20110411
  Serious: Yes (Other)
  Sender: FDA-Public Use
  Company Number: PHHY2010US78769

PATIENT

DRUGS (1)
  1. GLEEVEC [Suspect]
     Dosage: 600 MG

REACTIONS (3)
  - CONGESTIVE CARDIOMYOPATHY [None]
  - DISEASE PROGRESSION [None]
  - ELECTROCARDIOGRAM QT PROLONGED [None]
